FAERS Safety Report 6961521-0 (Version None)
Quarter: 2010Q3

REPORT INFORMATION
  Report Type: 
  Country: None (occurrence: None)
  Receive Date: 20100901
  Receipt Date: 20100824
  Transmission Date: 20110219
  Serious: Yes (Death)
  Sender: FDA-Public Use
  Company Number: US-EISAI INC.-E2020-07303-SPO-US

PATIENT
  Age: 95 Year
  Sex: Male

DRUGS (2)
  1. ARICEPT [Suspect]
     Route: 048
     Dates: end: 20100801
  2. ARICEPT [Suspect]
     Route: 048
     Dates: start: 20100801

REACTIONS (1)
  - BRADYCARDIA [None]
